FAERS Safety Report 26134259 (Version 1)
Quarter: 2025Q4

REPORT INFORMATION
  Report Type: Spontaneous
  Country: EU (occurrence: None)
  Receive Date: 20251209
  Receipt Date: 20251209
  Transmission Date: 20260117
  Serious: Yes (Life-Threatening, Other)
  Sender: AUROBINDO
  Company Number: EU-LRB-01098732

PATIENT
  Age: 76 Year
  Sex: Female
  Weight: 60 kg

DRUGS (2)
  1. PANTOPRAZOLE [Suspect]
     Active Substance: PANTOPRAZOLE
     Indication: Barrett^s oesophagus
     Dosage: 40 MILLIGRAM, TWO TIMES A DAY
     Dates: start: 20201122, end: 20251110
  2. MAGNESIUMSULFAAT INFVLST 200MG/ML (0,8MMOL/ML) / Brand name not specif [Concomitant]
     Indication: Product used for unknown indication
     Dosage: UNK INFUSION FLUID, 200 MG/ML (MILLIGRAM PER MILLILITER)
     Route: 065

REACTIONS (3)
  - Hypomagnesaemia [Recovering/Resolving]
  - Hypokalaemia [Recovering/Resolving]
  - Ventricular tachycardia [Recovering/Resolving]
